FAERS Safety Report 8394424-8 (Version None)
Quarter: 2012Q2

REPORT INFORMATION
  Report Type: 
  Country: None (occurrence: None)
  Receive Date: 20120530
  Receipt Date: 20120523
  Transmission Date: 20120825
  Serious: Yes (Other)
  Sender: FDA-Public Use
  Company Number: PHHY2010AU86715

PATIENT
  Sex: Female

DRUGS (2)
  1. GLEEVEC [Suspect]
     Indication: CHRONIC MYELOID LEUKAEMIA
     Dosage: 400 MG,
     Route: 048
     Dates: start: 20090101, end: 20110801
  2. MOVIPREP [Concomitant]

REACTIONS (2)
  - GENE MUTATION IDENTIFICATION TEST POSITIVE [None]
  - BLOOD TEST ABNORMAL [None]
